FAERS Safety Report 11107208 (Version 4)
Quarter: 2015Q2

REPORT INFORMATION
  Report Type: Report from Study
  Country: KR (occurrence: KR)
  Receive Date: 20150512
  Receipt Date: 20150626
  Transmission Date: 20150821
  Serious: Yes (Death, Other)
  Sender: FDA-Public Use
  Company Number: KR-PFIZER INC-2015140724

PATIENT
  Age: 73 Year
  Sex: Female
  Weight: 62 kg

DRUGS (6)
  1. PENIRAMIN [Concomitant]
     Indication: PROPHYLAXIS
     Dosage: UNK
     Route: 042
     Dates: start: 20110103
  2. DORMICUM [Concomitant]
     Active Substance: MIDAZOLAM\MIDAZOLAM HYDROCHLORIDE
     Indication: PROPHYLAXIS
     Dosage: UNK
     Route: 042
     Dates: start: 20101006
  3. TYGACIL [Suspect]
     Active Substance: TIGECYCLINE
     Indication: PNEUMONIA
  4. TYGACIL [Suspect]
     Active Substance: TIGECYCLINE
     Indication: CHOLANGITIS
     Dosage: 100 MG, DAILY
     Route: 042
     Dates: start: 20110103, end: 20110112
  5. MEROPEN [Concomitant]
     Active Substance: MEROPENEM
     Indication: PNEUMONIA
     Dosage: UNK
     Route: 042
     Dates: start: 20110112
  6. MAGNESIUM [Concomitant]
     Active Substance: MAGNESIUM
     Indication: PROPHYLAXIS
     Dosage: UNK
     Route: 042
     Dates: start: 20101006

REACTIONS (4)
  - Acute kidney injury [Fatal]
  - Condition aggravated [Fatal]
  - Bone marrow failure [Not Recovered/Not Resolved]
  - Condition aggravated [Not Recovered/Not Resolved]

NARRATIVE: CASE EVENT DATE: 20110103
